FAERS Safety Report 8119051-9 (Version None)
Quarter: 2011Q4

REPORT INFORMATION
  Report Type: 
  Country: None (occurrence: None)
  Receive Date: 20111227
  Receipt Date: 20110920
  Transmission Date: 20120403
  Serious: No
  Sender: FDA-Public Use
  Company Number: PHEH2011US05047

PATIENT
  Age: 20 Year
  Sex: Female

DRUGS (3)
  1. GILENYA [Suspect]
     Indication: MULTIPLE SCLEROSIS
     Dosage: 0.5 MG, QD, ORAL
     Route: 048
     Dates: start: 20110913
  2. CONTRACEPTIVES (NO INGREDIENTS/SUBSTANCES) [Concomitant]
  3. SEIZURE MEDICATION [Concomitant]

REACTIONS (1)
  - MENSTRUAL DISORDER [None]
